FAERS Safety Report 25304478 (Version 1)
Quarter: 2025Q2

REPORT INFORMATION
  Report Type: Report from Study
  Country: US (occurrence: US)
  Receive Date: 20250513
  Receipt Date: 20250513
  Transmission Date: 20250716
  Serious: Yes (Hospitalization, Other)
  Sender: GILEAD
  Company Number: US-GILEAD-2025-0712972

PATIENT
  Age: 64 Year
  Sex: Female

DRUGS (2)
  1. BICTEGRAVIR\EMTRICITABINE\TENOFOVIR ALAFENAMIDE [Suspect]
     Active Substance: BICTEGRAVIR\EMTRICITABINE\TENOFOVIR ALAFENAMIDE
     Indication: HIV infection
     Dosage: 1 DOSAGE FORM, QD
     Route: 048
  2. EFAVIRENZ\EMTRICITABINE\TENOFOVIR DISOPROXIL FUMARATE [Suspect]
     Active Substance: EFAVIRENZ\EMTRICITABINE\TENOFOVIR DISOPROXIL FUMARATE
     Indication: HIV infection
     Route: 065
     Dates: start: 2009

REACTIONS (13)
  - Renal failure [Unknown]
  - Loss of consciousness [Unknown]
  - Pneumonia [Unknown]
  - Blindness unilateral [Unknown]
  - Head injury [Unknown]
  - Speech disorder [Recovered/Resolved]
  - Dehydration [Unknown]
  - Diarrhoea [Unknown]
  - Gait inability [Unknown]
  - Feeding disorder [Unknown]
  - Eye swelling [Unknown]
  - Contusion [Unknown]
  - Illness [Unknown]

NARRATIVE: CASE EVENT DATE: 20230201
